FAERS Safety Report 4751532-8 (Version None)
Quarter: 2005Q3

REPORT INFORMATION
  Report Type: 
  Country: None (occurrence: None)
  Receive Date: 20050823
  Receipt Date: 20050823
  Transmission Date: 20060218
  Serious: No
  Sender: FDA-Public Use
  Company Number: None

PATIENT
  Age: 78 Year
  Sex: Male
  Weight: 42 kg

DRUGS (3)
  1. LISINOPRIL [Suspect]
     Indication: CARDIAC FAILURE
     Dosage: 10 MG PO DAILY
     Route: 048
     Dates: start: 20040928
  2. SPIRONOLACTONE [Suspect]
     Indication: CARDIAC FAILURE
     Dosage: 12.5 MG PO DAILY
     Route: 048
     Dates: start: 20050124
  3. KCL 8 MEQ X2 DAILY [Suspect]
     Dates: start: 20040928

REACTIONS (4)
  - ABDOMINAL PAIN [None]
  - ASTHENIA [None]
  - BLOOD POTASSIUM INCREASED [None]
  - FATIGUE [None]
